FAERS Safety Report 5890930-6 (Version None)
Quarter: 2008Q3

REPORT INFORMATION
  Report Type: 
  Country: None (occurrence: None)
  Receive Date: 20080922
  Receipt Date: 20080912
  Transmission Date: 20090109
  Serious: Yes (Hospitalization)
  Sender: FDA-Public Use
  Company Number: A0731832A

PATIENT
  Age: 46 Year
  Sex: Male
  Weight: 161.8 kg

DRUGS (2)
  1. AVANDAMET [Suspect]
     Route: 048
     Dates: start: 20010101, end: 20060101
  2. METFORMIN HCL [Concomitant]

REACTIONS (3)
  - HEART INJURY [None]
  - MYOCARDIAL INFARCTION [None]
  - PAIN [None]
